FAERS Safety Report 6620535-0 (Version None)
Quarter: 2010Q1

REPORT INFORMATION
  Report Type: 
  Country: None (occurrence: None)
  Receive Date: 20100309
  Receipt Date: 20100301
  Transmission Date: 20100710
  Serious: Yes (Hospitalization)
  Sender: FDA-Public Use
  Company Number: US-ELI_LILLY_AND_COMPANY-US201003001315

PATIENT
  Sex: Female

DRUGS (3)
  1. HUMALOG [Suspect]
     Indication: TYPE 2 DIABETES MELLITUS
  2. LANTUS [Concomitant]
     Indication: TYPE 2 DIABETES MELLITUS
     Dosage: 32 U, DAILY (1/D)
     Dates: start: 20080101
  3. LASIX [Concomitant]
     Indication: OEDEMA

REACTIONS (10)
  - BLOOD GLUCOSE DECREASED [None]
  - DRUG INTERACTION [None]
  - EYE SWELLING [None]
  - FEELING ABNORMAL [None]
  - HEART RATE INCREASED [None]
  - MALAISE [None]
  - NIGHT SWEATS [None]
  - OEDEMA PERIPHERAL [None]
  - SPEECH DISORDER [None]
  - VISUAL ACUITY REDUCED [None]
